FAERS Safety Report 9839005 (Version 2)
Quarter: 2014Q3

REPORT INFORMATION
  Report Type: Spontaneous
  Country: US (occurrence: US)
  Receive Date: 20140123
  Receipt Date: 20140728
  Transmission Date: 20150326
  Serious: Yes (Hospitalization, Other)
  Sender: FDA-Public Use
  Company Number: US-009507513-1401USA010134

PATIENT
  Sex: Female
  Weight: 117.91 kg

DRUGS (1)
  1. NUVARING [Suspect]
     Active Substance: ETHINYL ESTRADIOL\ETONOGESTREL
     Indication: CONTRACEPTION
     Dosage: UNK
     Route: 067

REACTIONS (9)
  - Constipation [Unknown]
  - Hyperlipidaemia [Unknown]
  - Exploratory operation [Unknown]
  - Acute respiratory failure [Recovered/Resolved]
  - Pulmonary embolism [Unknown]
  - Presyncope [Unknown]
  - Hypertension [Unknown]
  - International normalised ratio decreased [Unknown]
  - Endometriosis [Unknown]

NARRATIVE: CASE EVENT DATE: 20121205
